FAERS Safety Report 10703715 (Version 2)
Quarter: 2015Q2

REPORT INFORMATION
  Report Type: Spontaneous
  Country: JP (occurrence: JP)
  Receive Date: 20150112
  Receipt Date: 20150506
  Transmission Date: 20150821
  Serious: Yes (Other)
  Sender: FDA-Public Use
  Company Number: JP-TEVA-533630ISR

PATIENT
  Age: 35 Year
  Sex: Male

DRUGS (4)
  1. CISPLATIN. [Suspect]
     Active Substance: CISPLATIN
     Indication: PERITONEAL MESOTHELIOMA MALIGNANT
     Dosage: 60 MG/M2/D ON DAY 1, REPEATED EVERY 3 WEEKS
     Route: 041
  2. VITAMIN B12 [Concomitant]
     Active Substance: CYANOCOBALAMIN
  3. PEMETREXED [Suspect]
     Active Substance: PEMETREXED
     Indication: PERITONEAL MESOTHELIOMA MALIGNANT
     Dosage: 500 MG/M2/DAY ON DAY 1 REPEATED EVERY 3 WEEKS
     Route: 041
  4. FOLIC ACID. [Concomitant]
     Active Substance: FOLIC ACID
     Dosage: 1000MG DAILY 1-2W PRIOR TO PEMETREXED UNTIL 3W AFTER PEMETREXED STOPPED
     Route: 048

REACTIONS (3)
  - Ascites [Unknown]
  - Glomerular filtration rate decreased [Unknown]
  - Anaemia [Unknown]
